FAERS Safety Report 15569557 (Version 5)
Quarter: 2019Q3

REPORT INFORMATION
  Report Type: Spontaneous
  Country: PT (occurrence: PT)
  Receive Date: 20181031
  Receipt Date: 20190726
  Transmission Date: 20191004
  Serious: Yes (Other)
  Sender: FDA-Public Use
  Company Number: PT-AUROBINDO-AUR-APL-2018-031874

PATIENT

DRUGS (7)
  1. RIFAMYCIN [Suspect]
     Active Substance: RIFAMYCIN
     Indication: ATYPICAL MYCOBACTERIAL INFECTION
     Dosage: 600 MILLIGRAM, ONCE A DAY,(600 MG, QD), DAILY
     Route: 065
  2. RIFAMYCIN [Suspect]
     Active Substance: RIFAMYCIN
     Indication: LUNG INFECTION
  3. CIPROFLOXACIN FILM-COATED TABLET [Suspect]
     Active Substance: CIPROFLOXACIN
     Dosage: 1500 MILLIGRAM, TWO TIMES A DAY, TWICE DAILY
     Route: 065
  4. ETHAMBUTOL [Suspect]
     Active Substance: ETHAMBUTOL HYDROCHLORIDE
     Indication: LUNG INFECTION
     Dosage: 1200 MILLIGRAM, ONCE A DAY,(1200 MG, QD), , CORRESPONDING TO 18 MG/KG/DAY
     Route: 065
  5. CIPROFLOXACIN FILM-COATED TABLET [Suspect]
     Active Substance: CIPROFLOXACIN
     Indication: LUNG INFECTION
     Dosage: 750 MILLIGRAM, ONCE A DAY (750 MG, BID)
     Route: 065
  6. CIPROFLOXACIN FILM-COATED TABLET [Suspect]
     Active Substance: CIPROFLOXACIN
     Indication: ATYPICAL MYCOBACTERIAL INFECTION
     Dosage: 1500 MILLIGRAM, ONCE A DAY,(750 MG, BID)
     Route: 065
  7. ETHAMBUTOL [Suspect]
     Active Substance: ETHAMBUTOL HYDROCHLORIDE
     Indication: ATYPICAL MYCOBACTERIAL INFECTION
     Dosage: 18 MILLIGRAM/KILOGRAM, ONCE A DAY
     Route: 065

REACTIONS (6)
  - Visual impairment [Recovering/Resolving]
  - Gastrointestinal toxicity [Recovered/Resolved]
  - Hypoaesthesia [Recovering/Resolving]
  - Axonal neuropathy [Recovering/Resolving]
  - Visual acuity reduced [Recovered/Resolved]
  - Off label use [Unknown]
